FAERS Safety Report 9144600 (Version 2)
Quarter: 2013Q2

REPORT INFORMATION
  Report Type: Spontaneous
  Country: DK (occurrence: GB)
  Receive Date: 20130306
  Receipt Date: 20130423
  Transmission Date: 20140414
  Serious: Yes (Other)
  Sender: FDA-Public Use
  Company Number: GB-FRI-1000043176

PATIENT
  Age: 65 Year
  Sex: Female

DRUGS (4)
  1. ESCITALOPRAM [Suspect]
     Indication: DEPRESSION
     Dosage: 20 MG
     Route: 048
     Dates: start: 20070829
  2. ESCITALOPRAM [Suspect]
     Dosage: 10 MG DAILY
     Route: 048
  3. CALCIHEW D3 FORTE [Concomitant]
     Indication: OSTEOPENIA
     Dosage: TWO TABLETS DAILY
     Route: 048
     Dates: start: 20111116
  4. ALENDRONIC ACID [Concomitant]
     Indication: OSTEOPENIA
     Dosage: 70 MG WEEKLY
     Route: 048
     Dates: start: 20110416

REACTIONS (2)
  - Forearm fracture [Unknown]
  - Clavicle fracture [Recovering/Resolving]
